FAERS Safety Report 7184586-2 (Version None)
Quarter: 2010Q4

REPORT INFORMATION
  Report Type: 
  Country: None (occurrence: None)
  Receive Date: 20101222
  Receipt Date: 20101213
  Transmission Date: 20110411
  Serious: Yes (Death, Hospitalization, Other)
  Sender: FDA-Public Use
  Company Number: SI-ELI_LILLY_AND_COMPANY-SI201012003818

PATIENT
  Age: 65 Year
  Sex: Male

DRUGS (1)
  1. GEMZAR [Suspect]
     Indication: ADENOCARCINOMA PANCREAS
     Dosage: 1000MG, WEEKLY
     Dates: start: 20090316

REACTIONS (3)
  - DISEASE PROGRESSION [None]
  - PERIPHERAL ISCHAEMIA [None]
  - PLATELET COUNT INCREASED [None]
